FAERS Safety Report 7402631-3 (Version None)
Quarter: 2011Q1

REPORT INFORMATION
  Report Type: 
  Country: None (occurrence: None)
  Receive Date: 20110330
  Receipt Date: 20110317
  Transmission Date: 20110831
  Serious: Yes (Death)
  Sender: FDA-Public Use
  Company Number: 013972

PATIENT
  Age: 63 Year

DRUGS (13)
  1. FLUITRAN (TRICHLORMETHIAZIDE) [Concomitant]
  2. VITAMEDIN CAPSULE (BENFOTAMINE, CYANOCOBALAMIN, PYRIDOXINE HYDROCHLORI [Concomitant]
  3. FOLIC ACID [Concomitant]
  4. VALSARTAN [Concomitant]
  5. ALFAROL (ALFACALCIDOL) [Concomitant]
  6. CHOCOLA A (ERGOCALCIFEROL, RETINOL) [Concomitant]
  7. GASTROM (ECABET MONOSODIUM) [Concomitant]
  8. WARFARIN SODIUM [Concomitant]
  9. TAKEPRON (LANSOPRAZOLE) [Concomitant]
  10. LAC B (LACTOBACILLUS BIFIDUS, LYOPHILIZED) [Concomitant]
  11. LASIX [Concomitant]
  12. MACUGEN [Suspect]
     Indication: MACULAR DEGENERATION
     Dosage: 0.3MG, INTRAOCULAR
     Route: 031
     Dates: start: 20081114, end: 20090612
  13. MACUGEN [Suspect]
     Indication: CHOROIDAL NEOVASCULARISATION
     Dosage: 0.3MG, INTRAOCULAR
     Route: 031
     Dates: start: 20081114, end: 20090612

REACTIONS (1)
  - DEATH [None]
